FAERS Safety Report 5151528-0 (Version None)
Quarter: 2006Q4

REPORT INFORMATION
  Report Type: 
  Country: None (occurrence: None)
  Receive Date: 20061114
  Receipt Date: 20061114
  Transmission Date: 20070319
  Serious: Yes (Life-Threatening)
  Sender: FDA-Public Use
  Company Number: None

PATIENT
  Sex: Male
  Weight: 71 kg

DRUGS (2)
  1. CEFAZOLIN [Suspect]
     Indication: CELLULITIS
     Dosage: 2G Q8 H IV
     Route: 042
     Dates: start: 20060701, end: 20060725
  2. CEFAZOLIN [Suspect]

REACTIONS (1)
  - NEUTROPENIA [None]
